FAERS Safety Report 10284472 (Version 1)
Quarter: 2014Q3

REPORT INFORMATION
  Report Type: Spontaneous
  Country: RO (occurrence: RO)
  Receive Date: 20140708
  Receipt Date: 20140708
  Transmission Date: 20150326
  Serious: Yes (Death, Other)
  Sender: FDA-Public Use
  Company Number: RO-MYLANLABS-2014S1015456

PATIENT
  Age: 56 Year
  Sex: Female

DRUGS (2)
  1. THIAMAZOLE [Suspect]
     Active Substance: METHIMAZOLE
     Indication: HYPERTHYROIDISM
     Dosage: 40MG PER DAY, PROGRESSIVELY TAPERED TO 20MG PER DAY.
     Route: 048
  2. THIAMAZOLE [Suspect]
     Active Substance: METHIMAZOLE
     Indication: HYPERTHYROIDISM
     Dosage: 20MG PER DAY.
     Route: 048

REACTIONS (2)
  - Agranulocytosis [Recovered/Resolved]
  - Plasma cell myeloma [Fatal]
